FAERS Safety Report 4289917-9 (Version None)
Quarter: 2004Q1

REPORT INFORMATION
  Report Type: 
  Country: None (occurrence: None)
  Receive Date: 20040209
  Receipt Date: 20040129
  Transmission Date: 20041129
  Serious: Yes (Death, Hospitalization)
  Sender: FDA-Public Use
  Company Number: 200410237DE

PATIENT
  Age: 54 Year
  Sex: Female
  Weight: 74 kg

DRUGS (5)
  1. DOCETAXEL [Suspect]
     Indication: BREAST CANCER METASTATIC
     Route: 042
     Dates: start: 20031216, end: 20031223
  2. DOXORUBICIN HCL [Suspect]
     Indication: BREAST CANCER METASTATIC
     Route: 042
     Dates: start: 20031216, end: 20031223
  3. DEXAMETHASONE [Concomitant]
     Route: 042
     Dates: start: 20031216, end: 20031223
  4. ZOFRAN [Concomitant]
     Indication: NAUSEA
     Route: 042
     Dates: start: 20031216, end: 20031223
  5. SOSTRIL [Concomitant]
     Route: 042
     Dates: start: 20031216, end: 20031223

REACTIONS (14)
  - ANURIA [None]
  - BLOOD PRESSURE DECREASED [None]
  - CARDIO-RESPIRATORY ARREST [None]
  - DISSEMINATED INTRAVASCULAR COAGULATION [None]
  - HAEMOGLOBIN DECREASED [None]
  - HEPATIC ENZYME INCREASED [None]
  - MALLORY-WEISS SYNDROME [None]
  - MELAENA [None]
  - MULTI-ORGAN FAILURE [None]
  - NEUTROPENIA [None]
  - PROTHROMBIN TIME PROLONGED [None]
  - SHOCK HAEMORRHAGIC [None]
  - SYNCOPE [None]
  - THROMBOCYTOPENIA [None]
